FAERS Safety Report 7960143-2 (Version None)
Quarter: 2011Q4

REPORT INFORMATION
  Report Type: 
  Country: None (occurrence: None)
  Receive Date: 20111206
  Receipt Date: 20111130
  Transmission Date: 20120403
  Serious: Yes (Other)
  Sender: FDA-Public Use
  Company Number: PHHY2011JP102960

PATIENT
  Age: 61 Year
  Sex: Male

DRUGS (3)
  1. ZOSYN [Suspect]
     Dates: start: 20111114, end: 20111117
  2. LAMISIL [Suspect]
     Dosage: 125 MG
     Route: 048
     Dates: start: 20111001, end: 20111117
  3. SWORD [Suspect]
     Route: 048
     Dates: start: 20111111, end: 20111114

REACTIONS (2)
  - PYREXIA [None]
  - LIVER DISORDER [None]
